FAERS Safety Report 10298196 (Version 1)
Quarter: 2014Q3

REPORT INFORMATION
  Report Type: Spontaneous
  Country: US (occurrence: US)
  Receive Date: 20140711
  Receipt Date: 20140711
  Transmission Date: 20150326
  Serious: Yes (Hospitalization, Other)
  Sender: FDA-Public Use
  Company Number: US-SHIRE-US201403391

PATIENT
  Age: 11 Year
  Sex: Female

DRUGS (1)
  1. 433 (CARBAMAZEPINE) [Suspect]
     Active Substance: CARBAMAZEPINE
     Indication: CONVULSION
     Dosage: UNK, UNKNOWN
     Route: 048

REACTIONS (9)
  - Precocious puberty [Unknown]
  - Brain neoplasm [Unknown]
  - Psychotic disorder [Unknown]
  - Language disorder [Unknown]
  - Self injurious behaviour [Unknown]
  - Hallucination, auditory [Unknown]
  - Glucose tolerance impaired [Unknown]
  - Hypothalamo-pituitary disorder [Unknown]
  - Hypothyroidism [Unknown]
